FAERS Safety Report 10227282 (Version 2)
Quarter: 2015Q1

REPORT INFORMATION
  Report Type: Spontaneous
  Country: NL (occurrence: NL)
  Receive Date: 20140610
  Receipt Date: 20150311
  Transmission Date: 20150720
  Serious: Yes (Other)
  Sender: FDA-Public Use
  Company Number: NL-JNJFOC-20140517886

PATIENT

DRUGS (1)
  1. METHYLPHENIDATE HYDROCHLORIDE. [Suspect]
     Active Substance: METHYLPHENIDATE HYDROCHLORIDE
     Indication: ATTENTION DEFICIT/HYPERACTIVITY DISORDER
     Route: 048

REACTIONS (26)
  - Suicide attempt [Unknown]
  - Tachycardia [Unknown]
  - Hypertension [Unknown]
  - Confusional state [Unknown]
  - Hallucination [Unknown]
  - Toxicity to various agents [Unknown]
  - Nausea [Unknown]
  - Intentional product misuse [Unknown]
  - Arrhythmia [Unknown]
  - Drug administration error [Unknown]
  - Accidental exposure to product by child [Unknown]
  - Agitation [Unknown]
  - Mucosal dryness [Unknown]
  - Aggression [Unknown]
  - Drug abuse [Unknown]
  - Headache [Unknown]
  - Tremor [Unknown]
  - Chest pain [Unknown]
  - Accidental exposure to product [Unknown]
  - Somnolence [Unknown]
  - Tachypnoea [Unknown]
  - Psychotic disorder [Unknown]
  - Mydriasis [Unknown]
  - Incorrect route of drug administration [Unknown]
  - Hyperreflexia [Unknown]
  - Body temperature increased [Unknown]
